FAERS Safety Report 7483199-2 (Version None)
Quarter: 2011Q2

REPORT INFORMATION
  Report Type: 
  Country: None (occurrence: None)
  Receive Date: 20110516
  Receipt Date: 20110509
  Transmission Date: 20111010
  Serious: Yes (Death)
  Sender: FDA-Public Use
  Company Number: JP-GENENTECH-318875

PATIENT
  Age: 93 Year
  Sex: Female

DRUGS (2)
  1. ACTIVASE [Suspect]
     Indication: EMBOLIC STROKE
     Dosage: 18 ML, X1
     Route: 042
     Dates: start: 20110129, end: 20110129
  2. RADICUT [Suspect]
     Indication: EMBOLIC STROKE
     Dosage: UNK
     Route: 041
     Dates: start: 20110129, end: 20110130

REACTIONS (1)
  - CARDIAC FAILURE CONGESTIVE [None]
